FAERS Safety Report 25160734 (Version 1)
Quarter: 2025Q2

REPORT INFORMATION
  Report Type: Spontaneous
  Country: US (occurrence: US)
  Receive Date: 20250404
  Receipt Date: 20250404
  Transmission Date: 20250716
  Serious: No
  Sender: ALEXION PHARMACEUTICALS
  Company Number: US-AstraZeneca-CH-00837100A

PATIENT

DRUGS (1)
  1. FARXIGA [Suspect]
     Active Substance: DAPAGLIFLOZIN PROPANEDIOL
     Route: 065

REACTIONS (10)
  - Pollakiuria [Unknown]
  - Illness [Unknown]
  - Therapy change [Unknown]
  - Blood glucose increased [Unknown]
  - Emergency care [Unknown]
  - Feeling of relaxation [Unknown]
  - Asthenia [Unknown]
  - Presyncope [Unknown]
  - Malaise [Unknown]
  - Adverse drug reaction [Unknown]
